FAERS Safety Report 8433204-1 (Version None)
Quarter: 2012Q2

REPORT INFORMATION
  Report Type: 
  Country: None (occurrence: None)
  Receive Date: 20120613
  Receipt Date: 20120604
  Transmission Date: 20120825
  Serious: Yes (Other)
  Sender: FDA-Public Use
  Company Number: RU-VIIV HEALTHCARE LIMITED-B0806872A

PATIENT
  Sex: Female

DRUGS (6)
  1. EFAVIRENZ [Suspect]
     Indication: HIV INFECTION
     Route: 048
     Dates: start: 20120215, end: 20120301
  2. REYATAZ [Concomitant]
     Indication: HIV INFECTION
     Dosage: 300MG PER DAY
     Route: 048
     Dates: start: 20120521
  3. ABACAVIR SULFATE/LAMIVUDINE [Suspect]
     Indication: HIV INFECTION
     Dosage: 1TAB PER DAY
     Route: 048
     Dates: start: 20120215
  4. RITONAVIR [Concomitant]
     Indication: HIV INFECTION
     Dosage: 100MG PER DAY
     Route: 048
     Dates: start: 20120501
  5. COMBIVIR [Suspect]
     Indication: PRODUCT USED FOR UNKNOWN INDICATION
     Route: 065
     Dates: start: 20080101
  6. KALETRA [Suspect]
     Indication: HIV INFECTION
     Route: 048
     Dates: start: 20120301, end: 20120521

REACTIONS (13)
  - FEELING DRUNK [None]
  - IRRITABILITY [None]
  - GASTROINTESTINAL DISORDER [None]
  - ALANINE AMINOTRANSFERASE INCREASED [None]
  - AMENORRHOEA [None]
  - FATIGUE [None]
  - OEDEMA [None]
  - ELECTROCARDIOGRAM CHANGE [None]
  - MATERNAL EXPOSURE DURING PREGNANCY [None]
  - LIVE BIRTH [None]
  - ASPARTATE AMINOTRANSFERASE INCREASED [None]
  - INSOMNIA [None]
  - DEPRESSION [None]
